FAERS Safety Report 7654282-3 (Version None)
Quarter: 2011Q3

REPORT INFORMATION
  Report Type: 
  Country: None (occurrence: None)
  Receive Date: 20110803
  Receipt Date: 20110719
  Transmission Date: 20111222
  Serious: Yes (Hospitalization, Other)
  Sender: FDA-Public Use
  Company Number: PHHY2011US07049

PATIENT
  Sex: Male

DRUGS (4)
  1. LEVOTHYROXINE SODIUM [Concomitant]
  2. AMLODIPINE [Concomitant]
  3. RAMIPRIL [Concomitant]
  4. TASIGNA [Suspect]
     Dosage: 600 MG, UNK

REACTIONS (11)
  - CHEST PAIN [None]
  - GASTRITIS [None]
  - ATRIAL FIBRILLATION [None]
  - WEIGHT DECREASED [None]
  - FLUID RETENTION [None]
  - ABASIA [None]
  - PYREXIA [None]
  - OESOPHAGITIS [None]
  - TENDONITIS [None]
  - PAIN IN EXTREMITY [None]
  - CARDIAC FAILURE CONGESTIVE [None]
